FAERS Safety Report 21455683 (Version 1)
Quarter: 2022Q4

REPORT INFORMATION
  Report Type: Spontaneous
  Country: JP (occurrence: JP)
  Receive Date: 20221014
  Receipt Date: 20221014
  Transmission Date: 20230113
  Serious: Yes (Other)
  Sender: FDA-Public Use
  Company Number: JP-SA-SAC20221010001864

PATIENT
  Age: 72 Year
  Sex: Male

DRUGS (1)
  1. OXALIPLATIN [Suspect]
     Active Substance: OXALIPLATIN
     Dosage: UNK (ELPLAT I.V. INFUSION SOLUTION FORMULATION: INJECTION)
     Route: 042

REACTIONS (6)
  - Renal impairment [Unknown]
  - Neuropathy peripheral [Unknown]
  - Venoocclusive liver disease [Unknown]
  - Varices oesophageal [Unknown]
  - Liver disorder [Unknown]
  - Platelet count decreased [Unknown]
